FAERS Safety Report 12760593 (Version 2)
Quarter: 2016Q3

REPORT INFORMATION
  Report Type: Spontaneous
  Country: PT (occurrence: PT)
  Receive Date: 20160919
  Receipt Date: 20160929
  Transmission Date: 20161109
  Serious: Yes (Other)
  Sender: FDA-Public Use
  Company Number: PT-009507513-1609PRT006279

PATIENT
  Sex: Female

DRUGS (1)
  1. IMPLANON [Suspect]
     Active Substance: ETONOGESTREL
     Dosage: IMPLANT IN THE LEFT ARM
     Route: 059
     Dates: start: 20151021

REACTIONS (8)
  - Pain in extremity [Unknown]
  - Angina pectoris [Unknown]
  - Oedema peripheral [Unknown]
  - Implant site pruritus [Unknown]
  - Confusional state [Unknown]
  - Weight decreased [Unknown]
  - Device breakage [Unknown]
  - Migration of implanted drug [Unknown]

NARRATIVE: CASE EVENT DATE: 20160909
